FAERS Safety Report 18799658 (Version 1)
Quarter: 2021Q1

REPORT INFORMATION
  Report Type: Spontaneous
  Country: US (occurrence: US)
  Receive Date: 20210128
  Receipt Date: 20210128
  Transmission Date: 20210419
  Serious: Yes (Other)
  Sender: FDA-Public Use
  Company Number: None

PATIENT
  Age: 54 Year
  Sex: Female
  Weight: 83.25 kg

DRUGS (9)
  1. AZELESTINE DROPS [Concomitant]
  2. OMEPRAZOLE. [Concomitant]
     Active Substance: OMEPRAZOLE
  3. MIGRELIEF [Concomitant]
     Active Substance: DIETARY SUPPLEMENT
  4. OXYBUTINOL [Concomitant]
  5. BEPREVE [Concomitant]
     Active Substance: BEPOTASTINE BESILATE
  6. CALCIUM [Concomitant]
     Active Substance: CALCIUM
  7. DUPIXENT [Suspect]
     Active Substance: DUPILUMAB
     Indication: ECZEMA
     Dates: start: 20190801, end: 20210128
  8. ELETRIPTAN. [Concomitant]
     Active Substance: ELETRIPTAN
  9. ASTHMA INHALER [Concomitant]
     Active Substance: UNSPECIFIED INGREDIENT

REACTIONS (9)
  - Eye swelling [None]
  - Conjunctivitis [None]
  - Nasal congestion [None]
  - Nasal discomfort [None]
  - Drug ineffective [None]
  - Sneezing [None]
  - Eye pruritus [None]
  - Eye inflammation [None]
  - Visual impairment [None]

NARRATIVE: CASE EVENT DATE: 20210128
